FAERS Safety Report 6039105-0 (Version None)
Quarter: 2009Q1

REPORT INFORMATION
  Report Type: 
  Country: None (occurrence: None)
  Receive Date: 20090115
  Receipt Date: 20090107
  Transmission Date: 20090719
  Serious: Yes (Other)
  Sender: FDA-Public Use
  Company Number: NO-PFIZER INC-2009152496

PATIENT

DRUGS (2)
  1. SALAZOPYRIN [Suspect]
     Indication: SPONDYLITIS
     Route: 048
     Dates: start: 20080505, end: 20080701
  2. HUMIRA [Interacting]
     Indication: SPONDYLITIS
     Route: 058
     Dates: start: 20080618

REACTIONS (1)
  - NEUTROPENIA [None]
